FAERS Safety Report 4284691-4 (Version None)
Quarter: 2004Q1

REPORT INFORMATION
  Report Type: 
  Country: None (occurrence: None)
  Receive Date: 20040130
  Receipt Date: 20040116
  Transmission Date: 20041129
  Serious: Yes (Other)
  Sender: FDA-Public Use
  Company Number: K200400082

PATIENT
  Age: 23 Year
  Sex: Female
  Weight: 88 kg

DRUGS (2)
  1. NORDETTE-21 [Suspect]
     Dosage: ORAL
     Route: 048
  2. REDUCTIL (SIBUTRAMINE HYDROCHLORIDE) 10 MG [Suspect]
     Indication: WEIGHT CONTROL
     Dosage: 10 MG, ORAL
     Route: 048
     Dates: start: 20030901

REACTIONS (4)
  - COMPLICATIONS OF MATERNAL EXPOSURE TO THERAPEUTIC DRUGS [None]
  - DRUG INEFFECTIVE [None]
  - DRUG INTERACTION [None]
  - UNINTENDED PREGNANCY [None]
